FAERS Safety Report 9109782 (Version 2)
Quarter: 2013Q2

REPORT INFORMATION
  Report Type: Report from Study
  Country: DE (occurrence: DE)
  Receive Date: 20130222
  Receipt Date: 20130418
  Transmission Date: 20140414
  Serious: No
  Sender: FDA-Public Use
  Company Number: DE-ABBOTT-13P-062-1050939-00

PATIENT
  Age: 64 Year
  Sex: Male
  Weight: 70 kg

DRUGS (5)
  1. HUMIRA [Suspect]
     Indication: RHEUMATOID ARTHRITIS
     Route: 058
     Dates: start: 20120308
  2. ANALGESICS [Concomitant]
     Indication: RHEUMATOID ARTHRITIS
  3. VITAMIN B12 [Concomitant]
     Indication: INFLAMMATORY BOWEL DISEASE
  4. CALCIUM CARBONATE [Concomitant]
     Indication: OSTEOPOROSIS
  5. CYMBALTA [Concomitant]
     Indication: MENTAL DISORDER

REACTIONS (1)
  - Neoplasm skin [Recovered/Resolved]
